FAERS Safety Report 8095567 (Version 2)
Quarter: 2012Q4

REPORT INFORMATION
  Report Type: 
  Country: US (occurrence: US)
  Receive Date: 20110818
  Receipt Date: 20121019
  Transmission Date: 20130627
  Serious: Yes (Hospitalization)
  Sender: FDA-Public Use
  Company Number: US-US-EMD SERONO, INC.-7076940

PATIENT
  Age: 52 None
  Sex: Male

DRUGS (2)
  1. REBIF [Suspect]
     Indication: MULTIPLE SCLEROSIS
     Route: 058
     Dates: start: 20030519
  2. REBIF [Suspect]
     Route: 058
     Dates: start: 201108

REACTIONS (4)
  - Renal failure [Unknown]
  - Primary progressive multiple sclerosis [Unknown]
  - Urinary tract infection [Unknown]
  - Injection site reaction [Unknown]
